FAERS Safety Report 7922260 (Version 3)
Quarter: 2013Q2

REPORT INFORMATION
  Report Type: Spontaneous
  Country: US (occurrence: US)
  Receive Date: 20110429
  Receipt Date: 20130408
  Transmission Date: 20140414
  Serious: No
  Sender: FDA-Public Use
  Company Number: US-ASTRAZENECA-2011SE08312

PATIENT
  Age: 70 Year
  Sex: Male

DRUGS (2)
  1. NEXIUM [Suspect]
     Route: 048
  2. NEXIUM [Suspect]
     Dosage: GENERIC
     Route: 048

REACTIONS (3)
  - Drug ineffective [Unknown]
  - Adverse event [Unknown]
  - Drug dose omission [Unknown]
